FAERS Safety Report 24827043 (Version 1)
Quarter: 2025Q1

REPORT INFORMATION
  Report Type: Spontaneous
  Country: US (occurrence: US)
  Receive Date: 20250109
  Receipt Date: 20250109
  Transmission Date: 20250409
  Serious: Yes (Other)
  Sender: BLUEPRINT MEDICINES
  Company Number: US-Blueprint Medicines Corporation-2025-AER-00025

PATIENT
  Age: 74 Year
  Sex: Female

DRUGS (1)
  1. AYVAKIT [Suspect]
     Active Substance: AVAPRITINIB
     Indication: Systemic mastocytosis
     Route: 065
     Dates: start: 20231019

REACTIONS (7)
  - Chronic kidney disease [Unknown]
  - Tremor [Unknown]
  - Fatigue [Unknown]
  - Brain fog [Unknown]
  - Muscle spasms [Unknown]
  - Blood potassium decreased [Unknown]
  - Incontinence [Unknown]

NARRATIVE: CASE EVENT DATE: 20240101
